FAERS Safety Report 15573252 (Version 3)
Quarter: 2018Q4

REPORT INFORMATION
  Report Type: Report from Study
  Country: None (occurrence: US)
  Receive Date: 20181101
  Receipt Date: 20181117
  Transmission Date: 20190205
  Serious: Yes (Death, Hospitalization, Other)
  Sender: FDA-Public Use
  Company Number: US-ABBVIE-18K-163-2540410-00

PATIENT
  Age: 73 Year
  Sex: Female
  Weight: 122.58 kg

DRUGS (3)
  1. HUMIRA [Suspect]
     Active Substance: ADALIMUMAB
     Route: 058
     Dates: end: 201807
  2. HUMIRA [Suspect]
     Active Substance: ADALIMUMAB
     Route: 058
     Dates: start: 20180730, end: 20180730
  3. HUMIRA [Suspect]
     Active Substance: ADALIMUMAB
     Indication: CROHN^S DISEASE
     Route: 058
     Dates: start: 2005

REACTIONS (10)
  - Fall [Recovered/Resolved]
  - Sinusitis [Recovered/Resolved]
  - Fluid retention [Not Recovered/Not Resolved]
  - Respiratory failure [Fatal]
  - Pneumonia [Not Recovered/Not Resolved]
  - Upper-airway cough syndrome [Recovered/Resolved]
  - Lung squamous cell carcinoma stage III [Fatal]
  - Femur fracture [Recovered/Resolved]
  - Vascular compression [Not Recovered/Not Resolved]
  - Bronchospasm [Not Recovered/Not Resolved]

NARRATIVE: CASE EVENT DATE: 201807
